FAERS Safety Report 25080480 (Version 5)
Quarter: 2025Q2

REPORT INFORMATION
  Report Type: Spontaneous
  Country: US (occurrence: US)
  Receive Date: 20250315
  Receipt Date: 20250513
  Transmission Date: 20250716
  Serious: No
  Sender: SANOFI AVENTIS
  Company Number: US-SA-2025SA074556

PATIENT
  Age: 17 Year
  Sex: Female

DRUGS (2)
  1. DUPIXENT [Suspect]
     Active Substance: DUPILUMAB
     Indication: Asthma
     Route: 058
     Dates: start: 20250220, end: 20250220
  2. DUPIXENT [Suspect]
     Active Substance: DUPILUMAB
     Dosage: 300 MG, QOW
     Route: 058
     Dates: start: 20250306

REACTIONS (7)
  - Rash macular [Recovered/Resolved]
  - Eczema [Recovered/Resolved]
  - Anxiety [Unknown]
  - Oropharyngeal pain [Recovered/Resolved]
  - Injection site bruising [Unknown]
  - Injection site pain [Not Recovered/Not Resolved]
  - Asthma [Recovered/Resolved]

NARRATIVE: CASE EVENT DATE: 20250101
